FAERS Safety Report 6286460-2 (Version None)
Quarter: 2009Q3

REPORT INFORMATION
  Report Type: 
  Country: None (occurrence: None)
  Receive Date: 20090728
  Receipt Date: 20090721
  Transmission Date: 20100115
  Serious: Yes (Hospitalization)
  Sender: FDA-Public Use
  Company Number: B0577509A

PATIENT
  Sex: Male

DRUGS (6)
  1. PAXIL [Suspect]
     Indication: ANXIETY DISORDER
     Route: 048
     Dates: end: 20081119
  2. WYPAX [Concomitant]
     Indication: INSOMNIA
     Route: 048
     Dates: end: 20081119
  3. WYPAX [Concomitant]
     Route: 048
     Dates: start: 20081206
  4. SILECE [Concomitant]
     Indication: INSOMNIA
     Route: 065
     Dates: end: 20081119
  5. SOLANAX [Concomitant]
     Indication: ANXIETY
     Route: 048
     Dates: end: 20081119
  6. SOLANAX [Concomitant]
     Route: 048
     Dates: start: 20081216

REACTIONS (11)
  - ABDOMINAL PAIN UPPER [None]
  - CHROMATURIA [None]
  - DECREASED APPETITE [None]
  - FATIGUE [None]
  - HAEMOLYSIS [None]
  - HEPATIC ENZYME ABNORMAL [None]
  - HEPATITIS ACUTE [None]
  - HYPOPHAGIA [None]
  - JAUNDICE [None]
  - LIVER DISORDER [None]
  - NAUSEA [None]
